FAERS Safety Report 18515186 (Version 2)
Quarter: 2020Q4

REPORT INFORMATION
  Report Type: Other
  Country: CZ (occurrence: CZ)
  Receive Date: 20201118
  Receipt Date: 20201203
  Transmission Date: 20210114
  Serious: Yes (Other)
  Sender: FDA-Public Use
  Company Number: CZ-ROCHE-2589426

PATIENT
  Age: 68 Year
  Sex: Female

DRUGS (3)
  1. POLATUZUMAB VEDOTIN. [Suspect]
     Active Substance: POLATUZUMAB VEDOTIN
     Indication: DIFFUSE LARGE B-CELL LYMPHOMA
     Dosage: CYCLE 1?NEXT DOSES WERE RECEIVED ON 21/JAN/2020 (CYCLE 2), 12/FEB/2020 (CYCLE 3), 04/MAR/2020 (CYCLE
     Route: 042
     Dates: start: 20191223, end: 20200518
  2. RITUXIMAB. [Suspect]
     Active Substance: RITUXIMAB
     Indication: DIFFUSE LARGE B-CELL LYMPHOMA
     Dosage: CYCLE 1?NEXT DOSES WERE RECEIVED ON 21/JAN/2020 (CYCLE 2), 12/FEB/2020 (CYCLE 3), 04/MAR/2020 (CYCLE
     Route: 042
     Dates: start: 20191223, end: 20200518
  3. BENDAMUSTINE [Suspect]
     Active Substance: BENDAMUSTINE
     Indication: DIFFUSE LARGE B-CELL LYMPHOMA
     Dosage: CYCLE 1?NEXT DOSES WERE RECEIVED ON 21/JAN/2020 (CYCLE 2), 12/FEB/2020 (CYCLE 3), 04/MAR/2020 (CYCLE
     Route: 042
     Dates: start: 20191223, end: 20200518

REACTIONS (2)
  - Cytopenia [Unknown]
  - Myelosuppression [Unknown]

NARRATIVE: CASE EVENT DATE: 20200121
